FAERS Safety Report 16706042 (Version 3)
Quarter: 2021Q4

REPORT INFORMATION
  Report Type: Spontaneous
  Country: US (occurrence: US)
  Receive Date: 20190815
  Receipt Date: 20211215
  Transmission Date: 20220303
  Serious: Yes (Other)
  Sender: FDA-Public Use
  Company Number: US-PFIZER INC-2019270116

PATIENT
  Age: 8 Year
  Sex: Male
  Weight: 29.478 kg

DRUGS (3)
  1. GENOTROPIN [Suspect]
     Active Substance: SOMATROPIN
     Indication: Growth hormone deficiency
     Dosage: 0.9 MG, DAILY
     Dates: start: 2017, end: 2017
  2. GENOTROPIN [Suspect]
     Active Substance: SOMATROPIN
     Dosage: 1 MG, DAILY
     Dates: start: 201907
  3. GENOTROPIN [Suspect]
     Active Substance: SOMATROPIN
     Dosage: 1 MG INJECTION ONCE DAILY

REACTIONS (15)
  - Device use issue [Unknown]
  - Expired device used [Unknown]
  - Drug dose omission by device [Unknown]
  - Pain [Recovering/Resolving]
  - Screaming [Recovering/Resolving]
  - Vomiting [Recovering/Resolving]
  - Crying [Recovering/Resolving]
  - Neck injury [Recovering/Resolving]
  - Device delivery system issue [Unknown]
  - Device mechanical issue [Unknown]
  - Headache [Unknown]
  - Product prescribing error [Unknown]
  - Sluggishness [Not Recovered/Not Resolved]
  - Fatigue [Not Recovered/Not Resolved]
  - Headache [Recovering/Resolving]

NARRATIVE: CASE EVENT DATE: 20190101
